FAERS Safety Report 17283557 (Version 1)
Quarter: 2020Q1

REPORT INFORMATION
  Report Type: Spontaneous
  Country: US (occurrence: US)
  Receive Date: 20200117
  Receipt Date: 20200117
  Transmission Date: 20200409
  Serious: Yes (Other)
  Sender: FDA-Public Use
  Company Number: None

PATIENT
  Age: 3 Year
  Sex: Male
  Weight: 18.9 kg

DRUGS (4)
  1. FLOVENT HFA [Suspect]
     Active Substance: FLUTICASONE PROPIONATE
     Indication: ASTHMA
     Dosage: ?          QUANTITY:2 PUFF(S);?
     Route: 055
  2. BIOGAIA [Concomitant]
     Active Substance: LACTOBACILLUS REUTERI
  3. MULTI VITAMINS [Concomitant]
     Active Substance: VITAMINS
  4. ELDERBERRY [Concomitant]
     Active Substance: HERBALS

REACTIONS (2)
  - Defiant behaviour [None]
  - Aggression [None]

NARRATIVE: CASE EVENT DATE: 20200101
